FAERS Safety Report 10853819 (Version 1)
Quarter: 2015Q1

REPORT INFORMATION
  Report Type: Spontaneous
  Country: US (occurrence: US)
  Receive Date: 20150223
  Receipt Date: 20150223
  Transmission Date: 20150721
  Serious: Yes (Death)
  Sender: FDA-Public Use
  Company Number: US-CIPLA LTD.-2015US01241

PATIENT

DRUGS (5)
  1. CIMETIDINE [Concomitant]
     Active Substance: CIMETIDINE
     Indication: THYMIC CANCER METASTATIC
     Dosage: 300 MG 1 HOUR BEFORE THE PACLITAXEL REPEATED EVERY 21 DAYS FOR TWO COURSES
     Route: 042
  2. CARBOPLATIN. [Suspect]
     Active Substance: CARBOPLATIN
     Indication: THYMIC CANCER METASTATIC
     Dosage: AUC OF 6 IV OVER 30 MINUTES ON REPEATED EVERY 21 DAYS FOR TWO COURSES
     Route: 042
  3. DEXAMETHASONE. [Concomitant]
     Active Substance: DEXAMETHASONE
     Indication: THYMIC CANCER METASTATIC
     Dosage: 20 MG 1 HOUR BEFORE THE PACLITAXEL REPEATED EVERY 21 DAYS FOR TWO COURSES
     Route: 042
  4. PACLITAXEL. [Suspect]
     Active Substance: PACLITAXEL
     Indication: THYMIC CANCER METASTATIC
     Dosage: 225 MG/M2, OVER 3 HOURS ON DAY 1 AND REPEATED EVERY 21 DAYS FOR TWO COURSES
     Route: 042
  5. DIPHENHYDRAMINE [Concomitant]
     Active Substance: DIPHENHYDRAMINE
     Indication: THYMIC CANCER METASTATIC
     Dosage: 25 MG 1 HOUR BEFORE THE PACLITAXEL REPEATED EVERY 21 DAYS FOR TWO COURSES
     Route: 042

REACTIONS (1)
  - Disease recurrence [Fatal]
